FAERS Safety Report 10423190 (Version 3)
Quarter: 2014Q3

REPORT INFORMATION
  Report Type: Spontaneous
  Country: GB (occurrence: GB)
  Receive Date: 20140902
  Receipt Date: 20140930
  Transmission Date: 20150326
  Serious: Yes (Other)
  Sender: FDA-Public Use
  Company Number: 2014SP005012

PATIENT
  Age: 48 Year
  Sex: Male

DRUGS (3)
  1. DAPSONE. [Suspect]
     Active Substance: DAPSONE
     Indication: URTICARIA
  2. NEORAL [Suspect]
     Active Substance: CYCLOSPORINE
     Indication: URTICARIA
     Route: 048
     Dates: start: 2008, end: 20140717
  3. METHOTREXATE [Suspect]
     Active Substance: METHOTREXATE
     Indication: PRODUCT USED FOR UNKNOWN INDICATION

REACTIONS (4)
  - Drug ineffective [Unknown]
  - Renal impairment [Unknown]
  - Blood creatinine increased [Recovered/Resolved]
  - Urticaria [Unknown]

NARRATIVE: CASE EVENT DATE: 20140717
